FAERS Safety Report 21686658 (Version 1)
Quarter: 2022Q4

REPORT INFORMATION
  Report Type: Report from Study
  Country: US (occurrence: US)
  Receive Date: 20221206
  Receipt Date: 20221206
  Transmission Date: 20230113
  Serious: No
  Sender: FDA-Public Use
  Company Number: US-ABBVIE-4191189

PATIENT
  Sex: Female

DRUGS (1)
  1. HUMIRA [Suspect]
     Active Substance: ADALIMUMAB
     Indication: Psoriatic arthropathy
     Dosage: CITRATE FREE?FORM STRENGTH 40 MILLIGRAM?THE ONSET DATE FOR ADVERSE EVENT PSORIATIC ARTHRITIS FLAR...
     Route: 058

REACTIONS (2)
  - Psoriatic arthropathy [Recovered/Resolved]
  - Fibromyalgia [Recovering/Resolving]
